FAERS Safety Report 7553920-3 (Version None)
Quarter: 2011Q2

REPORT INFORMATION
  Report Type: 
  Country: None (occurrence: None)
  Receive Date: 20110614
  Receipt Date: 20110614
  Transmission Date: 20111010
  Serious: Yes (Hospitalization, Other)
  Sender: FDA-Public Use
  Company Number: None

PATIENT
  Age: 26 Year
  Sex: Female
  Weight: 77.5651 kg

DRUGS (2)
  1. E.E.S. 400 [Suspect]
     Indication: UPPER RESPIRATORY TRACT INFECTION
     Dosage: 400MG 3X DAILY PO
     Route: 048
     Dates: start: 20110518, end: 20110531
  2. E.E.S. 400 [Suspect]
     Indication: ACNE
     Dosage: 400MG 3X DAILY PO
     Route: 048
     Dates: start: 20110518, end: 20110531

REACTIONS (6)
  - SECRETION DISCHARGE [None]
  - SKIN DISCOLOURATION [None]
  - PURPURA [None]
  - RASH PRURITIC [None]
  - SKIN DISORDER [None]
  - DERMATITIS INFECTED [None]
